FAERS Safety Report 7682427-8 (Version None)
Quarter: 2011Q3

REPORT INFORMATION
  Report Type: 
  Country: None (occurrence: None)
  Receive Date: 20110815
  Receipt Date: 20110804
  Transmission Date: 20111222
  Serious: Yes (Other)
  Sender: FDA-Public Use
  Company Number: US-GENZYME-FABR-1002066

PATIENT

DRUGS (2)
  1. FABRAZYME [Suspect]
     Indication: FABRY'S DISEASE
     Dosage: 105 MG, Q4W
     Route: 042
  2. FABRAZYME [Suspect]
     Dosage: UNK
     Route: 042
     Dates: start: 20070101

REACTIONS (7)
  - VOMITING [None]
  - DEAFNESS [None]
  - DIARRHOEA [None]
  - BURNING SENSATION [None]
  - FEELING ABNORMAL [None]
  - DISEASE PROGRESSION [None]
  - PYREXIA [None]
